FAERS Safety Report 20406899 (Version 2)
Quarter: 2022Q1

REPORT INFORMATION
  Report Type: Spontaneous
  Country: US (occurrence: US)
  Receive Date: 20220131
  Receipt Date: 20220208
  Transmission Date: 20220424
  Serious: Yes (Hospitalization)
  Sender: FDA-Public Use
  Company Number: US-INCYTE CORPORATION-2022IN000736

PATIENT

DRUGS (2)
  1. JAKAFI [Suspect]
     Active Substance: RUXOLITINIB
     Indication: White blood cell count increased
     Dosage: 5 MILLIGRAM, BID
     Route: 048
     Dates: start: 202104
  2. JAKAFI [Suspect]
     Active Substance: RUXOLITINIB
     Dosage: 5 MILLIGRAM, BID
     Route: 048
     Dates: start: 20210415

REACTIONS (3)
  - COVID-19 [Unknown]
  - Blood iron increased [Unknown]
  - Off label use [Unknown]

NARRATIVE: CASE EVENT DATE: 20210415
